FAERS Safety Report 5961277-4 (Version None)
Quarter: 2008Q4

REPORT INFORMATION
  Report Type: 
  Country: None (occurrence: None)
  Receive Date: 20081119
  Receipt Date: 20081110
  Transmission Date: 20090506
  Serious: Yes (Hospitalization)
  Sender: FDA-Public Use
  Company Number: 2008SP021110

PATIENT
  Age: 60 Year
  Sex: Female

DRUGS (4)
  1. TEMODAL [Suspect]
     Indication: GLIOBLASTOMA
     Dosage: 120 MG
     Dates: start: 20080729, end: 20080918
  2. PRIMPERAN TAB [Concomitant]
  3. KYTRIL [Concomitant]
  4. DITRIM DUPLO [Concomitant]

REACTIONS (10)
  - ALANINE AMINOTRANSFERASE INCREASED [None]
  - ASPARTATE AMINOTRANSFERASE INCREASED [None]
  - BLOOD ALKALINE PHOSPHATASE INCREASED [None]
  - BLOOD POTASSIUM DECREASED [None]
  - DRUG ERUPTION [None]
  - ECZEMA [None]
  - EOSINOPHILIA [None]
  - HEPATIC ENZYME INCREASED [None]
  - PANCYTOPENIA [None]
  - PYREXIA [None]
